FAERS Safety Report 8000281-1 (Version None)
Quarter: 2011Q4

REPORT INFORMATION
  Report Type: 
  Country: None (occurrence: None)
  Receive Date: 20111220
  Receipt Date: 20111220
  Transmission Date: 20120403
  Serious: Yes (Death)
  Sender: FDA-Public Use
  Company Number: None

PATIENT
  Age: 21 Year
  Sex: Male
  Weight: 58.9676 kg

DRUGS (2)
  1. OXCARBAZEPINE [Suspect]
     Indication: EPILEPSY
     Dosage: 2 IN AM 2 IN PM
     Dates: start: 19970101, end: 20110101
  2. LAMICTAL [Suspect]
     Dosage: 1 DAILY
     Dates: start: 20110901

REACTIONS (1)
  - SUDDEN DEATH [None]
